FAERS Safety Report 19317038 (Version 8)
Quarter: 2022Q1

REPORT INFORMATION
  Report Type: Report from Study
  Country: US (occurrence: US)
  Receive Date: 20210527
  Receipt Date: 20220303
  Transmission Date: 20220423
  Serious: Yes (Other)
  Sender: FDA-Public Use
  Company Number: NVSC2021US119802

PATIENT
  Sex: Female

DRUGS (1)
  1. COSENTYX [Suspect]
     Active Substance: SECUKINUMAB
     Indication: Psoriatic arthropathy
     Dosage: 150 MG, Q4W
     Route: 058

REACTIONS (6)
  - Neuropathy peripheral [Unknown]
  - Arthralgia [Unknown]
  - Weight bearing difficulty [Unknown]
  - Pain [Unknown]
  - Burning feet syndrome [Unknown]
  - Drug ineffective [Unknown]
